FAERS Safety Report 7930532-0 (Version None)
Quarter: 2011Q4

REPORT INFORMATION
  Report Type: 
  Country: None (occurrence: None)
  Receive Date: 20111117
  Receipt Date: 20111117
  Transmission Date: 20120403
  Serious: Yes (Hospitalization)
  Sender: FDA-Public Use
  Company Number: None

PATIENT
  Age: 77 Year
  Sex: Male
  Weight: 92.0802 kg

DRUGS (3)
  1. ANTIHYPERTENSIVES [Concomitant]
  2. DIAZEPAM [Suspect]
     Indication: BACK PAIN
     Dosage: 10 MG EVERY 4 HRS. ORAL
     Route: 048
     Dates: start: 20110707, end: 20110710
  3. ROXICET [Concomitant]

REACTIONS (7)
  - REFLEXES ABNORMAL [None]
  - LOSS OF CONTROL OF LEGS [None]
  - BALANCE DISORDER [None]
  - DIZZINESS [None]
  - ABASIA [None]
  - FALL [None]
  - COORDINATION ABNORMAL [None]
